FAERS Safety Report 8064874 (Version 4)
Quarter: 2016Q1

REPORT INFORMATION
  Report Type: Report from Study
  Country: US (occurrence: US)
  Receive Date: 20110802
  Receipt Date: 20160201
  Transmission Date: 20160526
  Serious: Yes (Other)
  Sender: FDA-Public Use
  Company Number: US-VIIV HEALTHCARE LIMITED-A0861569A

PATIENT
  Age: 26 Year
  Sex: Female

DRUGS (3)
  1. LAMIVUDINE AND ZIDOVUDINE [Suspect]
     Active Substance: LAMIVUDINE\ZIDOVUDINE
     Indication: HIV INFECTION
     Dosage: 1 UNK, BID
     Route: 048
     Dates: start: 20100518
  2. ATRIPLA [Suspect]
     Active Substance: EFAVIRENZ\EMTRICITABINE\TENOFOVIR DISOPROXIL FUMARATE
     Indication: HIV INFECTION
     Route: 048
     Dates: end: 20100518
  3. REYATAZ [Suspect]
     Active Substance: ATAZANAVIR SULFATE
     Indication: HIV INFECTION
     Route: 048
     Dates: start: 20100518

REACTIONS (9)
  - Premature delivery [Unknown]
  - Live birth [Unknown]
  - Normal newborn [Unknown]
  - Vanishing twin syndrome [Unknown]
  - Twin pregnancy [Unknown]
  - Exposure during pregnancy [Unknown]
  - Prenatal screening test abnormal [Unknown]
  - Abortion spontaneous [Unknown]
  - Caesarean section [Unknown]

NARRATIVE: CASE EVENT DATE: 20100701
